FAERS Safety Report 7184270-5 (Version None)
Quarter: 2010Q4

REPORT INFORMATION
  Report Type: 
  Country: None (occurrence: None)
  Receive Date: 20101222
  Receipt Date: 20101208
  Transmission Date: 20110411
  Serious: Yes (Hospitalization)
  Sender: FDA-Public Use
  Company Number: PHHY2010AU67141

PATIENT
  Sex: Male

DRUGS (1)
  1. GLEEVEC [Suspect]
     Indication: CHRONIC MYELOID LEUKAEMIA
     Dosage: 400 MG
     Route: 048
     Dates: start: 20101101

REACTIONS (8)
  - ASTHENIA [None]
  - CARDIAC DISORDER [None]
  - FLUID RETENTION [None]
  - HYPOAESTHESIA [None]
  - LUNG DISORDER [None]
  - OCULAR HYPERAEMIA [None]
  - RASH [None]
  - URTICARIA [None]
